FAERS Safety Report 5934275-4 (Version None)
Quarter: 2008Q4

REPORT INFORMATION
  Report Type: 
  Country: None (occurrence: None)
  Receive Date: 20081029
  Receipt Date: 20081017
  Transmission Date: 20090506
  Serious: Yes (Hospitalization, Other)
  Sender: FDA-Public Use
  Company Number: PHHY2008JP25291

PATIENT
  Sex: Female

DRUGS (11)
  1. DIOVAN [Suspect]
     Indication: HYPERTENSION
     Dosage: 80 MG, QD
     Route: 048
     Dates: start: 20070903, end: 20070909
  2. DIOVAN [Suspect]
     Dosage: 80 MG, BID
     Route: 048
     Dates: start: 20070910, end: 20080521
  3. FLUITRAN [Suspect]
     Indication: HYPERTENSION
     Dosage: 0.5 MG DAILY
     Route: 048
     Dates: start: 20071027, end: 20080329
  4. FLUITRAN [Suspect]
     Dosage: 1 MG DAILY
     Route: 048
     Dates: start: 20080330, end: 20080521
  5. CONIEL [Concomitant]
     Indication: HYPERTENSION
     Dosage: 4 MG DAILY
     Route: 048
     Dates: start: 20070910
  6. CONIEL [Concomitant]
     Dosage: 8 MG DAILY
     Route: 048
     Dates: end: 20080521
  7. CARDENALIN [Concomitant]
     Indication: HYPERTENSION
     Dosage: 1 MG DAILY
     Route: 048
     Dates: start: 20071212
  8. CARDENALIN [Concomitant]
     Dosage: 2 MG DAILY
     Route: 048
     Dates: end: 20080521
  9. MIGLITOL [Concomitant]
     Dosage: 25 MG
     Route: 048
     Dates: start: 20070925
  10. MIGLITOL [Concomitant]
     Dosage: 100 MG
     Route: 048
  11. MIGLITOL [Concomitant]
     Dosage: 150 MG
     Route: 048

REACTIONS (2)
  - BREAST CANCER [None]
  - LACUNAR INFARCTION [None]
